FAERS Safety Report 9225587 (Version 1)
Quarter: 2013Q2

REPORT INFORMATION
  Report Type: Spontaneous
  Country: US (occurrence: US)
  Receive Date: 20130411
  Receipt Date: 20130411
  Transmission Date: 20140414
  Serious: Yes (Hospitalization)
  Sender: FDA-Public Use
  Company Number: US-GLAXOSMITHKLINE-A0723721A

PATIENT
  Age: 39 Year
  Sex: Female
  Weight: 167.3 kg

DRUGS (1)
  1. AVANDIA [Suspect]
     Indication: TYPE 2 DIABETES MELLITUS
     Dosage: 4MG SEE DOSAGE TEXT
     Route: 048
     Dates: start: 20000101

REACTIONS (8)
  - Myocardial infarction [Not Recovered/Not Resolved]
  - Diabetic complication [Unknown]
  - Cardiac failure congestive [Unknown]
  - Diabetes mellitus [Unknown]
  - Acute coronary syndrome [Unknown]
  - Palpitations [Unknown]
  - Depression [Unknown]
  - Transient ischaemic attack [Unknown]
